FAERS Safety Report 19001474 (Version 1)
Quarter: 2021Q1

REPORT INFORMATION
  Report Type: Spontaneous
  Country: US (occurrence: US)
  Receive Date: 20210312
  Receipt Date: 20210312
  Transmission Date: 20210420
  Serious: No
  Sender: FDA-Public Use
  Company Number: US-FARMAPROD-202012-1786

PATIENT
  Sex: Male
  Weight: 73.55 kg

DRUGS (8)
  1. TAGAMET HB [Concomitant]
     Active Substance: CIMETIDINE
     Route: 048
  2. LOVASTATIN. [Concomitant]
     Active Substance: LOVASTATIN
     Route: 048
  3. LISINOPRIL. [Concomitant]
     Active Substance: LISINOPRIL
     Route: 048
  4. AMITRIPTYLINE HCL [Concomitant]
     Active Substance: AMITRIPTYLINE
     Route: 048
  5. VITAMIN B?6 [Concomitant]
     Active Substance: PYRIDOXINE
     Route: 048
  6. OXERVATE [Suspect]
     Active Substance: CENEGERMIN-BKBJ
     Indication: NEUROTROPHIC KERATOPATHY
     Route: 047
     Dates: start: 20201207
  7. MULTI?VITAMIN [Concomitant]
     Active Substance: .ALPHA.-TOCOPHEROL ACETATE, DL-\ASCORBIC ACID\CYANOCOBALAMIN\FLUORIDE ION\FOLIC ACID\NIACIN\PYRIDOXINE\RIBOFLAVIN\THIAMINE\VITAMIN A\VITAMIN D
     Route: 048
  8. ASCORBIC ACID. [Concomitant]
     Active Substance: ASCORBIC ACID
     Route: 048

REACTIONS (5)
  - Ocular hyperaemia [Unknown]
  - Product administration error [Unknown]
  - Therapy interrupted [Unknown]
  - Eye pain [Unknown]
  - Ocular discomfort [Unknown]
